FAERS Safety Report 5094409-3 (Version None)
Quarter: 2006Q3

REPORT INFORMATION
  Report Type: 
  Country: None (occurrence: None)
  Receive Date: 20060830
  Receipt Date: 20060810
  Transmission Date: 20061208
  Serious: Yes (Hospitalization)
  Sender: FDA-Public Use
  Company Number: FR200608002005

PATIENT
  Age: 1 Day
  Sex: Female

DRUGS (5)
  1. PROZAC [Suspect]
  2. TERCIAN (CYAMEMAZINE) [Concomitant]
  3. TRANQUITAL (CRATAGEUS, VALERIANA OFFICINALIS ROOT) [Concomitant]
  4. TRANXENE [Concomitant]
  5. THERALENE (ALIMEMAZINE TARTRATE) [Concomitant]

REACTIONS (7)
  - BRAIN OEDEMA [None]
  - DRUG EXPOSURE DURING PREGNANCY [None]
  - DRUG WITHDRAWAL SYNDROME NEONATAL [None]
  - EXTRAPYRAMIDAL DISORDER [None]
  - HAEMATOMA [None]
  - NEONATAL DISORDER [None]
  - PREMATURE BABY [None]
